FAERS Safety Report 18968951 (Version 1)
Quarter: 2021Q1

REPORT INFORMATION
  Report Type: Spontaneous
  Country: US (occurrence: US)
  Receive Date: 20210304
  Receipt Date: 20210304
  Transmission Date: 20210420
  Serious: Yes (Other)
  Sender: FDA-Public Use
  Company Number: US-VYERA PHARMACEUTICALS, LLC-2020VYE00021

PATIENT
  Age: 0 Year
  Sex: Male
  Weight: 7.62 kg

DRUGS (7)
  1. DARAPRIM [Suspect]
     Active Substance: PYRIMETHAMINE
     Indication: CONGENITAL TOXOPLASMOSIS
     Dosage: 3 ML, 2X/DAY EVERY 12 HOURS
     Route: 048
     Dates: start: 20200227, end: 20200228
  2. DARAPRIM [Suspect]
     Active Substance: PYRIMETHAMINE
     Dosage: 3 ML, 1X/DAY
     Route: 048
     Dates: start: 20200228, end: 2020
  3. SULFADIAZINE. [Suspect]
     Active Substance: SULFADIAZINE
     Indication: CONGENITAL TOXOPLASMOSIS
     Dosage: 64 MG, 2X/DAY
     Dates: start: 20200229, end: 20200311
  4. BACTRIM [Concomitant]
     Active Substance: SULFAMETHOXAZOLE\TRIMETHOPRIM
     Dosage: 3.5 ML, 3X/DAY EVERY 8 HOURS
     Route: 048
     Dates: start: 20200222
  5. FOLINIC ACID [Concomitant]
     Active Substance: LEUCOVORIN
     Dosage: UNK
     Dates: start: 20200229
  6. DARAPRIM [Suspect]
     Active Substance: PYRIMETHAMINE
     Dosage: 3.2 ML, 1X/DAY
     Route: 048
     Dates: start: 2020, end: 20200311
  7. DARAPRIM [Suspect]
     Active Substance: PYRIMETHAMINE
     Dosage: 64 MG, 2X/DAY
     Route: 048
     Dates: start: 20200311, end: 20200317

REACTIONS (5)
  - Drug ineffective [Recovered/Resolved]
  - Neutropenia [Recovering/Resolving]
  - Aspartate aminotransferase increased [Unknown]
  - Incorrect product administration duration [Recovered/Resolved]
  - Accidental overdose [Recovered/Resolved]

NARRATIVE: CASE EVENT DATE: 2020
